FAERS Safety Report 24568894 (Version 1)
Quarter: 2024Q4

REPORT INFORMATION
  Report Type: Spontaneous
  Country: US (occurrence: None)
  Receive Date: 20241030
  Receipt Date: 20241030
  Transmission Date: 20250115
  Serious: Yes (unspecified)
  Sender: Public
  Company Number: None

PATIENT
  Age: 62 Year
  Sex: Female
  Weight: 90.9 kg

DRUGS (6)
  1. BLINK TRIPLE CARE [Suspect]
     Active Substance: POLYETHYLENE GLYCOL 400
     Indication: Dry eye
     Dosage: OTHER QUANTITY : 1 DROP(S);?FREQUENCY : AS NEEDED;?
     Route: 047
     Dates: start: 20241003, end: 20241025
  2. ROSUVASTATIN [Concomitant]
     Active Substance: ROSUVASTATIN
  3. UNSPECIFIED INGREDIENT [Concomitant]
     Active Substance: UNSPECIFIED INGREDIENT
  4. MIRABEGRON [Concomitant]
     Active Substance: MIRABEGRON
  5. Phentermine metformin [Concomitant]
  6. VITAMINS [Concomitant]
     Active Substance: VITAMINS

REACTIONS (5)
  - Swelling face [None]
  - Pharyngeal swelling [None]
  - Oral disorder [None]
  - Headache [None]
  - Facial pain [None]

NARRATIVE: CASE EVENT DATE: 20241030
